FAERS Safety Report 11325083 (Version 2)
Quarter: 2015Q3

REPORT INFORMATION
  Report Type: Other
  Country: JP (occurrence: JP)
  Receive Date: 20150730
  Receipt Date: 20150817
  Transmission Date: 20151125
  Serious: Yes (Hospitalization)
  Sender: FDA-Public Use
  Company Number: JP-MUNDIPHARMA DS AND PHARMACOVIGILANCE-GBR-2015-0029890

PATIENT
  Sex: Male

DRUGS (1)
  1. NORSPAN [Suspect]
     Active Substance: BUPRENORPHINE
     Indication: BACK PAIN
     Dosage: 25 MCG, Q1H
     Route: 062

REACTIONS (5)
  - Quadriplegia [Recovering/Resolving]
  - Accidental overdose [None]
  - Respiratory depression [Recovering/Resolving]
  - Altered state of consciousness [Recovered/Resolved]
  - Incorrect dose administered [Unknown]
